FAERS Safety Report 7590372-1 (Version None)
Quarter: 2011Q3

REPORT INFORMATION
  Report Type: 
  Country: None (occurrence: None)
  Receive Date: 20110705
  Receipt Date: 20110625
  Transmission Date: 20111222
  Serious: Yes (Disabling, Other)
  Sender: FDA-Public Use
  Company Number: US-SANOFI-AVENTIS-2011SA040815

PATIENT
  Sex: Female

DRUGS (4)
  1. LANTUS [Suspect]
     Indication: TYPE 2 DIABETES MELLITUS
     Dosage: DOSE:37 UNIT(S)
     Route: 058
  2. ALL OTHER THERAPEUTIC PRODUCTS [Concomitant]
  3. ACTOS ^LILLY^ [Concomitant]
  4. METFORMIN HCL [Concomitant]
     Route: 065

REACTIONS (5)
  - NERVE INJURY [None]
  - WHEELCHAIR USER [None]
  - BLOOD GLUCOSE FLUCTUATION [None]
  - MULTIPLE INJURIES [None]
  - ACCIDENT [None]
